FAERS Safety Report 18772805 (Version 3)
Quarter: 2021Q2

REPORT INFORMATION
  Report Type: Spontaneous
  Country: GB (occurrence: GB)
  Receive Date: 20210122
  Receipt Date: 20210612
  Transmission Date: 20210717
  Serious: Yes (Other)
  Sender: FDA-Public Use
  Company Number: GB-TEVA-2021-GB-1868580

PATIENT
  Age: 64 Year
  Sex: Female

DRUGS (16)
  1. ALENDRONIC ACID [Concomitant]
     Active Substance: ALENDRONIC ACID
     Indication: PRODUCT USED FOR UNKNOWN INDICATION
     Dosage: 70 MG
     Route: 048
  2. DIAZEPAM. [Concomitant]
     Active Substance: DIAZEPAM
     Indication: PRODUCT USED FOR UNKNOWN INDICATION
     Dosage: 2MG
     Route: 048
  3. FLECAINIDE [Concomitant]
     Active Substance: FLECAINIDE
     Dosage: 100 MILLIGRAM DAILY;
     Route: 048
  4. FRUSEMIDE [Concomitant]
     Active Substance: FUROSEMIDE
     Indication: PRODUCT USED FOR UNKNOWN INDICATION
     Dosage: 40 MILLIGRAM DAILY;
     Route: 048
     Dates: start: 20160814
  5. SERTRALINE [Concomitant]
     Active Substance: SERTRALINE HYDROCHLORIDE
     Indication: PRODUCT USED FOR UNKNOWN INDICATION
     Dosage: 50 MILLIGRAM DAILY;
     Route: 048
  6. DOCETAXEL. [Suspect]
     Active Substance: DOCETAXEL
     Indication: BREAST CANCER METASTATIC
     Dosage: 56 MG(CYCLE 4)
     Route: 042
     Dates: start: 20150519, end: 20150730
  7. TRASTUZUMAB. [Suspect]
     Active Substance: TRASTUZUMAB
     Dosage: 388.5 MG, (RELOADING DOSE)
     Route: 041
     Dates: start: 20150518, end: 20150518
  8. FLECAINIDE [Concomitant]
     Active Substance: FLECAINIDE
     Indication: PRODUCT USED FOR UNKNOWN INDICATION
     Dosage: 100 MILLIGRAM DAILY; 100 MG
     Route: 048
  9. BENZYDAMINE [Concomitant]
     Active Substance: BENZYDAMINE
     Indication: PRODUCT USED FOR UNKNOWN INDICATION
     Dosage: 15 ML DAILY; 15 ML (MOUTHWASH RINSE EVERY 1 1/2?3 HRS AS REQUIRED)
     Route: 048
  10. PERTUZUMAB. [Suspect]
     Active Substance: PERTUZUMAB
     Indication: HER2 POSITIVE BREAST CANCER
     Dosage: 420 MG, CYCLE 3
     Route: 042
     Dates: start: 20150618, end: 20150730
  11. TRASTUZUMAB. [Suspect]
     Active Substance: TRASTUZUMAB
     Dosage: 430.5 MG(CYCLE 1 RELOADING DOSE AS APPOINTMENT DELAYED)
     Route: 042
     Dates: start: 20150618, end: 20150618
  12. TRASTUZUMAB EMTANSINE [Suspect]
     Active Substance: ADO-TRASTUZUMAB EMTANSINE
     Indication: BREAST CANCER METASTATIC
     Dosage: 180 MG
     Route: 042
     Dates: start: 20150813
  13. RIVAROXABAN [Concomitant]
     Active Substance: RIVAROXABAN
     Indication: PRODUCT USED FOR UNKNOWN INDICATION
     Dosage: 20 MILLIGRAM DAILY;
     Route: 048
  14. PERTUZUMAB. [Suspect]
     Active Substance: PERTUZUMAB
     Indication: BREAST CANCER METASTATIC
     Dosage: 840 MG, CYCLE 1 ONLY
     Route: 042
     Dates: start: 20150518, end: 20150518
  15. TRASTUZUMAB. [Suspect]
     Active Substance: TRASTUZUMAB
     Indication: HER2 POSITIVE BREAST CANCER
     Dosage: 304.5 MG(CYCLE 2)
     Route: 042
     Dates: start: 20150709, end: 20150730
  16. FILGRASTIM [Concomitant]
     Active Substance: FILGRASTIM
     Indication: NEUTROPHIL COUNT DECREASED
     Dosage: UNK
     Route: 058
     Dates: start: 20170125, end: 20170129

REACTIONS (22)
  - Dizziness [Recovered/Resolved]
  - Haematemesis [Recovered/Resolved]
  - Ascites [Recovered/Resolved with Sequelae]
  - Dyspnoea [Not Recovered/Not Resolved]
  - Palpitations [Recovered/Resolved]
  - Abdominal distension [Recovered/Resolved with Sequelae]
  - Anaemia [Recovering/Resolving]
  - Fatigue [Unknown]
  - Nausea [Not Recovered/Not Resolved]
  - Rectal haemorrhage [Recovered/Resolved]
  - Constipation [Recovered/Resolved]
  - Fatigue [Not Recovered/Not Resolved]
  - Fatigue [Not Recovered/Not Resolved]
  - Abdominal discomfort [Recovered/Resolved]
  - Abdominal distension [Recovered/Resolved with Sequelae]
  - Abdominal pain [Recovered/Resolved]
  - Decreased appetite [Not Recovered/Not Resolved]
  - Gastrooesophageal reflux disease [Recovered/Resolved]
  - Dyspepsia [Recovered/Resolved]
  - Abdominal pain upper [Recovered/Resolved]
  - Abdominal distension [Not Recovered/Not Resolved]
  - Poor quality sleep [Not Recovered/Not Resolved]

NARRATIVE: CASE EVENT DATE: 20150729
